FAERS Safety Report 10259503 (Version 1)
Quarter: 2014Q2

REPORT INFORMATION
  Report Type: Spontaneous
  Country: US (occurrence: US)
  Receive Date: 20140625
  Receipt Date: 20140625
  Transmission Date: 20141212
  Serious: Yes (Other)
  Sender: FDA-Public Use
  Company Number: US-PFIZER INC-2014172026

PATIENT
  Age: 54 Year
  Sex: Male

DRUGS (12)
  1. LYRICA [Suspect]
     Dosage: 75 MG, 2X/DAY
     Route: 048
     Dates: start: 200906
  2. LYRICA [Suspect]
     Dosage: 100 MG, 3X/DAY
     Route: 048
     Dates: end: 20140429
  3. OXYCODONE [Concomitant]
     Indication: PAIN
     Dosage: 30 MG (ONE OR TWO TABLETS), 4X/DAY
  4. FOLIC ACID [Concomitant]
     Indication: HYPOVITAMINOSIS
     Dosage: 1 MG, 1X/DAY
  5. CITALOPRAM [Concomitant]
     Indication: DEPRESSION
     Dosage: 20 MG, 1X/DAY
  6. FENOFIBRATE [Concomitant]
     Indication: BLOOD CHOLESTEROL INCREASED
     Dosage: 145 MG, 1X/DAY
  7. DIAZEPAM [Concomitant]
     Indication: ANXIETY
     Dosage: 10 MG, 3X/DAY
  8. FLURAZEPAM [Concomitant]
     Indication: INSOMNIA
     Dosage: 30MG (ONE OR TWO TABLETS), 1X/DAY
  9. MORPHINE EXTENDED RELEASE [Concomitant]
     Indication: PAIN
     Dosage: 30 MG, 3X/DAY
  10. HALCION [Concomitant]
     Indication: INSOMNIA
     Dosage: 0.25 MG, 1X/DAY
  11. TRIAMCINOLONE [Concomitant]
     Indication: SKIN DISORDER
     Dosage: 0.1% LOTION
  12. ADDERALL [Concomitant]
     Indication: ATTENTION DEFICIT/HYPERACTIVITY DISORDER
     Dosage: 30 MG, 3X/DAY

REACTIONS (1)
  - Hand deformity [Recovering/Resolving]
